FAERS Safety Report 6288363-6 (Version None)
Quarter: 2009Q3

REPORT INFORMATION
  Report Type: 
  Country: None (occurrence: None)
  Receive Date: 20090729
  Receipt Date: 20090724
  Transmission Date: 20100115
  Serious: Yes (Hospitalization)
  Sender: FDA-Public Use
  Company Number: AU-WYE-G04093509

PATIENT
  Age: 77 Year
  Sex: Male

DRUGS (1)
  1. EFFEXOR XR [Suspect]
     Dosage: 150MG DAILY

REACTIONS (3)
  - BLOOD ELECTROLYTES ABNORMAL [None]
  - HYPONATRAEMIA [None]
  - PNEUMONIA ASPIRATION [None]
